FAERS Safety Report 6816267-6 (Version None)
Quarter: 2010Q2

REPORT INFORMATION
  Report Type: 
  Country: None (occurrence: None)
  Receive Date: 20100630
  Receipt Date: 20100617
  Transmission Date: 20101027
  Serious: Yes (Hospitalization, Other)
  Sender: FDA-Public Use
  Company Number: LVR-00217

PATIENT
  Age: 18 Year
  Sex: Female
  Weight: 69.4003 kg

DRUGS (7)
  1. LO/OVRAL-28 [Suspect]
     Indication: CONTRACEPTION
     Dates: start: 20081125
  2. LO/OVRAL-28 [Suspect]
     Indication: MENSTRUAL CYCLE MANAGEMENT
     Dates: start: 20081125
  3. YAZ [Suspect]
     Indication: CONTRACEPTION
     Dosage: DF, ORAL
     Route: 048
     Dates: start: 20080819, end: 20081124
  4. YAZ [Suspect]
     Indication: MENSTRUAL CYCLE MANAGEMENT
     Dosage: DF, ORAL
     Route: 048
     Dates: start: 20080819, end: 20081124
  5. YASMIN [Suspect]
     Indication: CONTRACEPTION
     Dosage: 1 DF, ORAL
     Route: 048
     Dates: start: 20070818, end: 20081124
  6. YASMIN [Suspect]
     Indication: MENSTRUAL CYCLE MANAGEMENT
     Dosage: 1 DF, ORAL
     Route: 048
     Dates: start: 20070818, end: 20081124
  7. DOXY TAB (DOXYCYCLINE HYDROCHLORIDE) 100 MG [Concomitant]

REACTIONS (4)
  - CHOLECYSTITIS CHRONIC [None]
  - CHOLELITHIASIS [None]
  - GALLBLADDER CHOLESTEROLOSIS [None]
  - METRORRHAGIA [None]
